FAERS Safety Report 18533066 (Version 1)
Quarter: 2020Q4

REPORT INFORMATION
  Report Type: Other
  Country: CA (occurrence: CA)
  Receive Date: 20201123
  Receipt Date: 20201123
  Transmission Date: 20210114
  Serious: Yes (Hospitalization, Other)
  Sender: FDA-Public Use
  Company Number: CA-CELLTRION INC.-2020CA031799

PATIENT

DRUGS (15)
  1. SEROQUEL [Concomitant]
     Active Substance: QUETIAPINE FUMARATE
  2. SOLU-MEDROL [Concomitant]
     Active Substance: METHYLPREDNISOLONE SODIUM SUCCINATE
     Indication: PREMEDICATION
     Dosage: 100 MG
     Route: 042
  3. SYNTHROID [Concomitant]
     Active Substance: LEVOTHYROXINE SODIUM
  4. RITUXIMAB (UNKNOWN) [Suspect]
     Active Substance: RITUXIMAB
     Indication: VASCULITIS
     Dosage: 760 MILLIGRAM 1 EVERY 1 WEEK
     Route: 042
  5. PANTOLOC [PANTOPRAZOLE] [Concomitant]
     Active Substance: PANTOPRAZOLE SODIUM
  6. TYLENOL [Concomitant]
     Active Substance: ACETAMINOPHEN
     Indication: PREMEDICATION
     Dosage: 650 MG
     Route: 048
  7. D TABS [Concomitant]
     Active Substance: CHOLECALCIFEROL
  8. RITUXIMAB (UNKNOWN) [Suspect]
     Active Substance: RITUXIMAB
     Indication: CONGENITAL SYPHILITIC OSTEOCHONDRITIS
     Dosage: 1000 MILLIGRAM 1 EVERY 6 MONTHS
     Route: 042
  9. IRBESARTAN. [Concomitant]
     Active Substance: IRBESARTAN
  10. LIPITOR [Concomitant]
     Active Substance: ATORVASTATIN CALCIUM
  11. NORVASC [Concomitant]
     Active Substance: AMLODIPINE BESYLATE
  12. SULFATRIM [Concomitant]
     Active Substance: SULFAMETHOXAZOLE\TRIMETHOPRIM
  13. BENADRYL [Concomitant]
     Active Substance: DIPHENHYDRAMINE HYDROCHLORIDE
     Indication: PREMEDICATION
     Dosage: 50 MG
     Route: 048
  14. CALCIUM [Concomitant]
     Active Substance: CALCIUM
  15. PREDNISONE. [Concomitant]
     Active Substance: PREDNISONE

REACTIONS (6)
  - Loss of consciousness [Not Recovered/Not Resolved]
  - Cardiac disorder [Not Recovered/Not Resolved]
  - Asthenia [Not Recovered/Not Resolved]
  - Wound [Not Recovered/Not Resolved]
  - Off label use [Unknown]
  - Overdose [Unknown]
